FAERS Safety Report 5652017-7 (Version None)
Quarter: 2008Q1

REPORT INFORMATION
  Report Type: 
  Country: None (occurrence: None)
  Receive Date: 20080305
  Receipt Date: 20080222
  Transmission Date: 20080703
  Serious: Yes (Other)
  Sender: FDA-Public Use
  Company Number: JP-PFIZER INC-2008017367

PATIENT
  Age: 78 Year
  Sex: Male

DRUGS (14)
  1. ZITHROMAX [Suspect]
     Indication: NASOPHARYNGITIS
     Dosage: DAILY DOSE:500MG
     Route: 048
     Dates: start: 20080215, end: 20080217
  2. ZITHROMAX [Suspect]
     Indication: UPPER RESPIRATORY TRACT INFLAMMATION
  3. ZITHROMAX [Suspect]
     Indication: PNEUMONIA
  4. PANSPORIN T [Concomitant]
  5. BLOPRESS [Concomitant]
  6. ALDACTONE [Concomitant]
  7. LASIX [Concomitant]
  8. RESPLEN [Concomitant]
  9. ZEOTIN [Concomitant]
  10. ALLOPURINOL [Concomitant]
  11. COMELIAN [Concomitant]
  12. VALPROATE SODIUM [Concomitant]
  13. LAXATIVES [Concomitant]
  14. WARFARIN SODIUM [Concomitant]

REACTIONS (2)
  - HEPATIC FUNCTION ABNORMAL [None]
  - INTERNATIONAL NORMALISED RATIO INCREASED [None]
